FAERS Safety Report 14627220 (Version 2)
Quarter: 2018Q2

REPORT INFORMATION
  Report Type: Spontaneous
  Country: US (occurrence: US)
  Receive Date: 20180312
  Receipt Date: 20180613
  Transmission Date: 20180711
  Serious: Yes (Other)
  Sender: FDA-Public Use
  Company Number: US-009507513-1803USA003355

PATIENT
  Age: 66 Year
  Sex: Male

DRUGS (1)
  1. KEYTRUDA [Suspect]
     Active Substance: PEMBROLIZUMAB
     Indication: MALIGNANT MELANOMA
     Dosage: UNK

REACTIONS (3)
  - Malignant neoplasm progression [Unknown]
  - Duodenal ulcer [Unknown]
  - Jejunal ulcer [Unknown]
